FAERS Safety Report 26210662 (Version 1)
Quarter: 2025Q4

REPORT INFORMATION
  Report Type: Spontaneous
  Country: CA (occurrence: CA)
  Receive Date: 20251230
  Receipt Date: 20251230
  Transmission Date: 20260117
  Serious: Yes (Hospitalization, Other)
  Sender: TEVA
  Company Number: CA-TEVA-VS-3407552

PATIENT
  Age: 24 Year
  Sex: Female

DRUGS (1)
  1. MYCOPHENOLATE MOFETIL [Suspect]
     Active Substance: MYCOPHENOLATE MOFETIL
     Indication: Prophylaxis against transplant rejection
     Route: 065

REACTIONS (3)
  - Transplant rejection [Recovering/Resolving]
  - Hepatic enzyme increased [Recovering/Resolving]
  - Blood bilirubin increased [Recovering/Resolving]
